FAERS Safety Report 10957005 (Version 1)
Quarter: 2015Q1

REPORT INFORMATION
  Report Type: Spontaneous
  Country: IT (occurrence: None)
  Receive Date: 20150325
  Receipt Date: 20150325
  Transmission Date: 20150721
  Serious: No
  Sender: FDA-Public Use
  Company Number: None

PATIENT
  Age: 21 Year
  Sex: Male
  Weight: 68 kg

DRUGS (1)
  1. CITALOPRAM [Suspect]
     Active Substance: CITALOPRAM HYDROBROMIDE
     Indication: ANXIETY
     Route: 048
     Dates: start: 20140101, end: 20140310

REACTIONS (5)
  - Erectile dysfunction [None]
  - Loss of libido [None]
  - Anorgasmia [None]
  - Libido decreased [None]
  - Sexual dysfunction [None]

NARRATIVE: CASE EVENT DATE: 20140213
